FAERS Safety Report 17687881 (Version 1)
Quarter: 2020Q2

REPORT INFORMATION
  Report Type: Spontaneous
  Country: US (occurrence: US)
  Receive Date: 20200417
  Receipt Date: 20200417
  Transmission Date: 20200714
  Serious: Yes (Hospitalization)
  Sender: FDA-Public Use
  Company Number: None

PATIENT
  Age: 80 Year
  Sex: Male

DRUGS (1)
  1. RIVAROXABAN (RIVAROXABAN 20MG TAB ) [Suspect]
     Active Substance: RIVAROXABAN
     Indication: ATRIAL FIBRILLATION
     Route: 048
     Dates: start: 20140508, end: 20171122

REACTIONS (5)
  - Haematuria [None]
  - Haemorrhage [None]
  - Calculus urinary [None]
  - Stent placement [None]
  - Packed red blood cell transfusion [None]

NARRATIVE: CASE EVENT DATE: 20171106
